FAERS Safety Report 4268076-2 (Version None)
Quarter: 2004Q1

REPORT INFORMATION
  Report Type: 
  Country: None (occurrence: None)
  Receive Date: 20040109
  Receipt Date: 20040109
  Transmission Date: 20041129
  Serious: Yes (Life-Threatening)
  Sender: FDA-Public Use
  Company Number: None

PATIENT
  Age: 2 Year
  Sex: Female
  Weight: 13.5 kg

DRUGS (4)
  1. GEMTUZUMAB [Suspect]
     Indication: ACUTE MYELOID LEUKAEMIA
     Dosage: 1.8 MG OVER SECONDARY IV X 1
     Route: 042
     Dates: start: 20031216
  2. CYTARABINE [Concomitant]
  3. DAUNOMYCIN [Concomitant]
  4. ETOPOSIDE [Concomitant]

REACTIONS (7)
  - ABDOMINAL DISTENSION [None]
  - ASCITES [None]
  - BLOOD CULTURE POSITIVE [None]
  - DECREASED APPETITE [None]
  - IMPLANT SITE INFECTION [None]
  - INFREQUENT BOWEL MOVEMENTS [None]
  - STREPTOCOCCAL INFECTION [None]
